FAERS Safety Report 14524245 (Version 1)
Quarter: 2018Q1

REPORT INFORMATION
  Report Type: Spontaneous
  Country: FI (occurrence: FI)
  Receive Date: 20180213
  Receipt Date: 20180213
  Transmission Date: 20180509
  Serious: Yes (Other)
  Sender: FDA-Public Use
  Company Number: FI-CIPLA LTD.-2018FI03366

PATIENT

DRUGS (2)
  1. HEINIX [Concomitant]
     Active Substance: CETIRIZINE HYDROCHLORIDE
     Indication: PRODUCT USED FOR UNKNOWN INDICATION
     Dosage: 10 MG, DAILY
     Route: 048
  2. ESCITALOPRAM [Suspect]
     Active Substance: ESCITALOPRAM OXALATE
     Indication: DEPRESSION
     Dosage: 2.5 MG, DAILY
     Route: 048
     Dates: start: 20150701, end: 20150701

REACTIONS (3)
  - Oropharyngeal oedema [Recovered/Resolved]
  - Dyspnoea [Recovered/Resolved]
  - Tracheal oedema [Recovered/Resolved]

NARRATIVE: CASE EVENT DATE: 20150701
